FAERS Safety Report 4393912-9 (Version None)
Quarter: 2004Q3

REPORT INFORMATION
  Report Type: 
  Country: None (occurrence: None)
  Receive Date: 20040702
  Receipt Date: 20040622
  Transmission Date: 20050211
  Serious: Yes (Death)
  Sender: FDA-Public Use
  Company Number: 163-20785-04060366

PATIENT
  Age: 56 Year
  Sex: Male
  Weight: 73.6 kg

DRUGS (5)
  1. THALOMID [Suspect]
     Indication: NON-SMALL CELL LUNG CANCER
     Dosage: 200 MG TITRATED TO 800MG, QHS, ORAL
     Route: 048
     Dates: start: 20040413, end: 20040528
  2. RADIATION [Suspect]
     Indication: NON-SMALL CELL LUNG CANCER
     Dosage: 37.5GY, DAY 1-5 EVERY WEEK FOR 3 WEEKS
     Dates: start: 20040401, end: 20040503
  3. COUMADIN [Concomitant]
  4. CISPLATIN [Concomitant]
  5. TAXOTERE [Concomitant]

REACTIONS (6)
  - COMA [None]
  - DEEP VEIN THROMBOSIS [None]
  - MALIGNANT NEOPLASM PROGRESSION [None]
  - NON-SMALL CELL LUNG CANCER [None]
  - PROTHROMBIN TIME PROLONGED [None]
  - SYNCOPE [None]
